FAERS Safety Report 15065090 (Version 1)
Quarter: 2018Q2

REPORT INFORMATION
  Report Type: Spontaneous
  Country: US (occurrence: US)
  Receive Date: 20180626
  Receipt Date: 20180626
  Transmission Date: 20180711
  Serious: No
  Sender: FDA-Public Use
  Company Number: US-GLENMARK PHARMACEUTICALS-2018GMK033951

PATIENT

DRUGS (1)
  1. RIZATRIPTAN BENZOATE. [Suspect]
     Active Substance: RIZATRIPTAN BENZOATE
     Indication: MIGRAINE
     Dosage: UNK
     Route: 065

REACTIONS (6)
  - Nausea [Unknown]
  - Product substitution issue [Unknown]
  - Product physical issue [Unknown]
  - Migraine [Unknown]
  - Product taste abnormal [Unknown]
  - Product solubility abnormal [Unknown]
